FAERS Safety Report 8378005-8 (Version None)
Quarter: 2012Q2

REPORT INFORMATION
  Report Type: 
  Country: None (occurrence: None)
  Receive Date: 20120522
  Receipt Date: 20120514
  Transmission Date: 20120825
  Serious: Yes (Hospitalization)
  Sender: FDA-Public Use
  Company Number: US-ABBOTT-12P-163-0935010-00

PATIENT
  Age: 49 Year
  Sex: Male

DRUGS (3)
  1. VICODIN [Suspect]
     Indication: PRODUCT USED FOR UNKNOWN INDICATION
     Dosage: 500MG Q4-6H
  2. PREDNISONE [Suspect]
     Indication: PRODUCT USED FOR UNKNOWN INDICATION
  3. IPILINUMAB [Suspect]
     Indication: MALIGNANT MELANOMA
     Route: 042
     Dates: start: 20120127, end: 20120412

REACTIONS (7)
  - BACK PAIN [None]
  - ARTHRITIS [None]
  - HEADACHE [None]
  - INFLAMMATION [None]
  - DECREASED APPETITE [None]
  - HYPOPHYSITIS [None]
  - DEHYDRATION [None]
